FAERS Safety Report 8246443-X (Version None)
Quarter: 2012Q1

REPORT INFORMATION
  Report Type: 
  Country: None (occurrence: None)
  Receive Date: 20120329
  Receipt Date: 20120329
  Transmission Date: 20120608
  Serious: Yes (Other)
  Sender: FDA-Public Use
  Company Number: None

PATIENT
  Age: 77 Year
  Sex: Male
  Weight: 117.4 kg

DRUGS (2)
  1. DABIGATRAN [Suspect]
     Indication: ATRIAL FIBRILLATION
     Dosage: 150 MG BID PO
     Route: 048
     Dates: start: 20111104, end: 20120321
  2. CLOPIDOGREL [Suspect]
     Indication: STENT PLACEMENT
     Dosage: 75 MG EVERY DAY PO
     Route: 048
     Dates: start: 20120301

REACTIONS (2)
  - CONTUSION [None]
  - HAEMORRHAGE [None]
